FAERS Safety Report 24096776 (Version 1)
Quarter: 2024Q3

REPORT INFORMATION
  Report Type: Report from Study
  Country: US (occurrence: None)
  Receive Date: 20240716
  Receipt Date: 20240716
  Transmission Date: 20241017
  Serious: Yes (Other)
  Sender: ASTRAZENECA
  Company Number: 2020SF28974

PATIENT
  Sex: Female

DRUGS (1)
  1. LYNPARZA [Suspect]
     Active Substance: OLAPARIB
     Indication: Ovarian cancer
     Route: 048

REACTIONS (11)
  - Lymphadenopathy [Unknown]
  - Carbohydrate antigen 125 increased [Recovering/Resolving]
  - Nausea [Recovered/Resolved]
  - Vomiting [Unknown]
  - Cough [Not Recovered/Not Resolved]
  - Fatigue [Unknown]
  - Depression [Recovering/Resolving]
  - Pneumonia [Unknown]
  - Sleep disorder [Unknown]
  - Dysphagia [Unknown]
  - Muscle tightness [Unknown]
